FAERS Safety Report 5189142-3 (Version None)
Quarter: 2007Q1

REPORT INFORMATION
  Report Type: 
  Country: None (occurrence: None)
  Receive Date: 20061215
  Receipt Date: 20061129
  Transmission Date: 20070707
  Serious: Yes (Other)
  Sender: FDA-Public Use
  Company Number: 2006BM000189

PATIENT
  Age: 37 Year

DRUGS (2)
  1. PREDNISOLONE [Suspect]
     Dosage: 10 MG, QD;
  2. ORAPRED [Suspect]
     Dosage: 20.2MG PER5 ML

REACTIONS (1)
  - CHORIORETINOPATHY [None]
